FAERS Safety Report 16583521 (Version 3)
Quarter: 2020Q4

REPORT INFORMATION
  Report Type: Report from Study
  Country: CA (occurrence: CA)
  Receive Date: 20190717
  Receipt Date: 20201113
  Transmission Date: 20210113
  Serious: Yes (Other)
  Sender: FDA-Public Use
  Company Number: CA-JNJFOC-20190709813

PATIENT
  Age: 41 Year
  Sex: Female

DRUGS (1)
  1. SIMPONI [Suspect]
     Active Substance: GOLIMUMAB
     Indication: ANKYLOSING SPONDYLITIS
     Dosage: STRENGTH = 50 MG
     Route: 058
     Dates: start: 20190402, end: 20190924

REACTIONS (4)
  - Product use issue [Unknown]
  - Off label use [Unknown]
  - Inflammatory bowel disease [Unknown]
  - Drug ineffective [Unknown]

NARRATIVE: CASE EVENT DATE: 2019
